FAERS Safety Report 10149245 (Version 1)
Quarter: 2014Q2

REPORT INFORMATION
  Report Type: Spontaneous
  Country: GB (occurrence: GB)
  Receive Date: 20140502
  Receipt Date: 20140502
  Transmission Date: 20141212
  Serious: Yes (Hospitalization, Other)
  Sender: FDA-Public Use
  Company Number: GB-JNJFOC-20140416718

PATIENT
  Age: 22 Year
  Sex: Female
  Weight: 57 kg

DRUGS (3)
  1. XARELTO [Suspect]
     Indication: EMBOLISM VENOUS
     Route: 048
     Dates: start: 20140108, end: 20140225
  2. XARELTO [Suspect]
     Indication: PULMONARY EMBOLISM
     Route: 048
     Dates: start: 20140108, end: 20140225
  3. BRUFEN [Concomitant]
     Indication: PLEURITIC PAIN
     Route: 048
     Dates: start: 20140108, end: 20140112

REACTIONS (2)
  - Malaise [Recovered/Resolved]
  - Gastrointestinal haemorrhage [Recovered/Resolved]
